FAERS Safety Report 5929838-6 (Version None)
Quarter: 2008Q4

REPORT INFORMATION
  Report Type: 
  Country: None (occurrence: None)
  Receive Date: 20081022
  Receipt Date: 20081009
  Transmission Date: 20090506
  Serious: Yes (Other)
  Sender: FDA-Public Use
  Company Number: US024665

PATIENT
  Age: 47 Year
  Sex: Female

DRUGS (5)
  1. ACTIQ [Suspect]
     Indication: BACK PAIN
     Dosage: BUCCAL
     Route: 002
  2. ACTIQ [Suspect]
     Indication: PAIN
     Dosage: BUCCAL
     Route: 002
  3. FENTORA [Concomitant]
  4. MORPHINE [Concomitant]
  5. OXYCODONE HCL [Concomitant]

REACTIONS (7)
  - CONDITION AGGRAVATED [None]
  - DEPRESSION [None]
  - DRUG PRESCRIBING ERROR [None]
  - FEAR [None]
  - FEELING OF DESPAIR [None]
  - SUICIDAL IDEATION [None]
  - SUICIDE ATTEMPT [None]
